FAERS Safety Report 18260587 (Version 2)
Quarter: 2020Q4

REPORT INFORMATION
  Report Type: Spontaneous
  Country: None (occurrence: CZ)
  Receive Date: 20200914
  Receipt Date: 20201105
  Transmission Date: 20210113
  Serious: Yes (Disabling)
  Sender: FDA-Public Use
  Company Number: CZ-SA-2020SA157535

PATIENT

DRUGS (6)
  1. VALDOXAN [Concomitant]
     Active Substance: AGOMELATINE
     Dosage: 25 MG
     Route: 065
  2. ZOLPIDEM TARTRATE. [Suspect]
     Active Substance: ZOLPIDEM TARTRATE
     Indication: DEPRESSION
  3. ESCITALOPRAM OXALATE. [Suspect]
     Active Substance: ESCITALOPRAM OXALATE
     Indication: DEPRESSION
     Dosage: 10 MG FILM-COATED TABLET
     Route: 048
     Dates: start: 2019, end: 2019
  4. VALDOXAN [Concomitant]
     Active Substance: AGOMELATINE
     Dosage: 50 MG
  5. ZOLPIDEM TARTRATE. [Suspect]
     Active Substance: ZOLPIDEM TARTRATE
     Indication: SLEEP DISORDER
     Dosage: UNK
     Route: 048
     Dates: start: 2019, end: 2019
  6. ESCITALOPRAM OXALATE. [Suspect]
     Active Substance: ESCITALOPRAM OXALATE
     Dosage: 20 MG, QD
     Route: 048
     Dates: start: 2019, end: 2019

REACTIONS (14)
  - Disturbance in attention [Recovering/Resolving]
  - Anhedonia [Recovering/Resolving]
  - Decreased immune responsiveness [Unknown]
  - Mood altered [Recovered/Resolved]
  - Therapeutic product effect incomplete [Recovered/Resolved]
  - Asthenia [Recovering/Resolving]
  - Anxiety [Unknown]
  - Condition aggravated [Recovering/Resolving]
  - Decreased interest [Recovered/Resolved]
  - Sleep disorder [Recovering/Resolving]
  - Abdominal distension [Unknown]
  - Sexual dysfunction [Recovered/Resolved]
  - Tension [Recovering/Resolving]
  - Drug ineffective [Unknown]

NARRATIVE: CASE EVENT DATE: 2018
